FAERS Safety Report 4317117-2 (Version None)
Quarter: 2004Q1

REPORT INFORMATION
  Report Type: 
  Country: None (occurrence: None)
  Receive Date: 20040312
  Receipt Date: 20040227
  Transmission Date: 20041129
  Serious: Yes (Other)
  Sender: FDA-Public Use
  Company Number: CN-JNJFOC-20040301973

PATIENT
  Age: 33 Year
  Sex: Male
  Weight: 70 kg

DRUGS (2)
  1. SPORANOX [Suspect]
     Indication: ONYCHOMYCOSIS
     Dosage: 200 MG, 1 IN 1 DAY, ORAL; 200 MG, 1 IN 1 DAY, ORAL
     Route: 048
     Dates: start: 20010901, end: 20010901
  2. SPORANOX [Suspect]
     Indication: ONYCHOMYCOSIS
     Dosage: 200 MG, 1 IN 1 DAY, ORAL; 200 MG, 1 IN 1 DAY, ORAL
     Route: 048
     Dates: start: 20011001, end: 20011001

REACTIONS (6)
  - BLOOD ALKALINE PHOSPHATASE INCREASED [None]
  - BLOOD CREATINE PHOSPHOKINASE INCREASED [None]
  - CARDIAC MYXOMA [None]
  - KERATOPATHY [None]
  - PAIN OF SKIN [None]
  - RASH [None]
